FAERS Safety Report 6547808-4 (Version None)
Quarter: 2010Q1

REPORT INFORMATION
  Report Type: 
  Country: None (occurrence: None)
  Receive Date: 20100124
  Receipt Date: 20091016
  Transmission Date: 20100710
  Serious: No
  Sender: FDA-Public Use
  Company Number: US-ALEXION-A200900723

PATIENT
  Sex: Female

DRUGS (10)
  1. SOLIRIS [Suspect]
     Indication: PAROXYSMAL NOCTURNAL HAEMOGLOBINURIA
     Dosage: 600 MG, QW
     Route: 042
     Dates: start: 20071026, end: 20071123
  2. SOLIRIS [Suspect]
     Dosage: 900 MG, Q2W
     Route: 042
     Dates: start: 20071207
  3. ATIVAN [Concomitant]
  4. FOLIC ACID [Concomitant]
  5. IBUPROFEN [Concomitant]
  6. DILAUDID [Concomitant]
     Indication: PAIN MANAGEMENT
     Dosage: 16 MG, (4 TABS) Q4H
  7. PROCRIT                            /00909301/ [Concomitant]
  8. COMPAZINE                          /00013302/ [Concomitant]
  9. DECADRON [Concomitant]
  10. COLACE [Concomitant]
     Indication: CONSTIPATION

REACTIONS (3)
  - HAEMATOCRIT DECREASED [None]
  - HAEMOGLOBIN DECREASED [None]
  - SINUSITIS [None]
